FAERS Safety Report 16050962 (Version 1)
Quarter: 2019Q1

REPORT INFORMATION
  Report Type: Spontaneous
  Country: NL (occurrence: NL)
  Receive Date: 20190308
  Receipt Date: 20190308
  Transmission Date: 20190418
  Serious: Yes (Hospitalization)
  Sender: FDA-Public Use
  Company Number: NL-AUROBINDO-AUR-APL-2019-011710

PATIENT

DRUGS (1)
  1. FOSINOPRIL SODIUM AUROBINDO TABLETS 20MG [Suspect]
     Active Substance: FOSINOPRIL SODIUM
     Indication: HYPERTENSION
     Dosage: 20 MILLIGRAM, TWO TIMES A DAY, 2X A DAY 1 PIECE
     Route: 048
     Dates: start: 1990

REACTIONS (1)
  - Swollen tongue [Recovering/Resolving]

NARRATIVE: CASE EVENT DATE: 20190214
